FAERS Safety Report 21064738 (Version 4)
Quarter: 2022Q3

REPORT INFORMATION
  Report Type: Spontaneous
  Country: JP (occurrence: JP)
  Receive Date: 20220711
  Receipt Date: 20220928
  Transmission Date: 20221026
  Serious: Yes (Death, Disabling, Other)
  Sender: FDA-Public Use
  Company Number: JP-CHUGAI-2022026475

PATIENT
  Age: 80 Year
  Sex: Male
  Weight: 46.2 kg

DRUGS (4)
  1. TECENTRIQ [Suspect]
     Active Substance: ATEZOLIZUMAB
     Indication: Hepatocellular carcinoma
     Dosage: 1200 MILLIGRAM, ONCE/3WEEKS
     Route: 041
     Dates: start: 20211217, end: 20220217
  2. TECENTRIQ [Suspect]
     Active Substance: ATEZOLIZUMAB
     Dosage: 1200 MILLIGRAM, SINGLE
     Route: 041
     Dates: start: 20220324, end: 20220324
  3. AVASTIN [Suspect]
     Active Substance: BEVACIZUMAB
     Indication: Hepatocellular carcinoma
     Dosage: 15 MILLIGRAM/KILOGRAM, ONCE/3WEEKS
     Route: 041
     Dates: start: 20211217, end: 20220217
  4. AVASTIN [Suspect]
     Active Substance: BEVACIZUMAB
     Dosage: 15 MILLIGRAM/KILOGRAM, SINGLE
     Route: 041
     Dates: start: 20220324, end: 20220324

REACTIONS (4)
  - Myositis [Fatal]
  - Dysphagia [Fatal]
  - Pneumonia aspiration [Fatal]
  - Rhabdomyolysis [Unknown]

NARRATIVE: CASE EVENT DATE: 20220101
